FAERS Safety Report 9327598 (Version 3)
Quarter: 2015Q1

REPORT INFORMATION
  Report Type: Spontaneous
  Country: US (occurrence: US)
  Receive Date: 20130604
  Receipt Date: 20150320
  Transmission Date: 20150721
  Serious: No
  Sender: FDA-Public Use
  Company Number: US-AMGEN-USASP2013034795

PATIENT
  Age: 60 Year
  Sex: Female
  Weight: 69.39 kg

DRUGS (3)
  1. ENBREL [Suspect]
     Active Substance: ETANERCEPT
     Dosage: UNK
     Route: 065
  2. ENBREL [Suspect]
     Active Substance: ETANERCEPT
     Indication: RHEUMATOID ARTHRITIS
     Dosage: 25 MG, 2 TIMES/WK
     Route: 065
     Dates: start: 2001
  3. METHOTREXATE [Suspect]
     Active Substance: METHOTREXATE
     Indication: PRODUCT USED FOR UNKNOWN INDICATION
     Dosage: 2.5 MG, 4 TABLETS A WEEK
     Route: 065

REACTIONS (20)
  - Oedema peripheral [Recovered/Resolved]
  - Oral candidiasis [Not Recovered/Not Resolved]
  - Injection site bruising [Recovered/Resolved]
  - Injection site swelling [Not Recovered/Not Resolved]
  - Cough [Recovered/Resolved]
  - Pain in extremity [Recovered/Resolved]
  - Red blood cell sedimentation rate increased [Recovered/Resolved]
  - Conjunctivitis [Recovered/Resolved]
  - Respiratory tract congestion [Recovered/Resolved]
  - Arthralgia [Recovered/Resolved]
  - Joint swelling [Recovered/Resolved]
  - Hepatic enzyme increased [Recovered/Resolved]
  - Nasopharyngitis [Recovered/Resolved]
  - Psoriasis [Not Recovered/Not Resolved]
  - Oropharyngeal pain [Recovered/Resolved]
  - Injection site induration [Not Recovered/Not Resolved]
  - Injection site pruritus [Not Recovered/Not Resolved]
  - Dyspnoea [Recovered/Resolved]
  - Injection site pain [Not Recovered/Not Resolved]
  - Pruritus [Not Recovered/Not Resolved]

NARRATIVE: CASE EVENT DATE: 2010
